FAERS Safety Report 13243540 (Version 1)
Quarter: 2017Q1

REPORT INFORMATION
  Report Type: Spontaneous
  Country: US (occurrence: US)
  Receive Date: 20170217
  Receipt Date: 20170217
  Transmission Date: 20170428
  Serious: No
  Sender: FDA-Public Use
  Company Number: US-BAYER-2017-032465

PATIENT
  Age: 77 Year
  Sex: Female

DRUGS (1)
  1. LOTRIMIN ULTRA [Suspect]
     Active Substance: BUTENAFINE HYDROCHLORIDE
     Indication: DERMATITIS
     Dosage: UNK
     Route: 061

REACTIONS (4)
  - Off label use [Unknown]
  - Inflammation [Unknown]
  - Adverse reaction [Unknown]
  - Malaise [Unknown]
